FAERS Safety Report 25096559 (Version 1)
Quarter: 2025Q1

REPORT INFORMATION
  Report Type: Spontaneous
  Country: CH (occurrence: CH)
  Receive Date: 20250319
  Receipt Date: 20250319
  Transmission Date: 20250409
  Serious: Yes (Other)
  Sender: BRISTOL-MYERS SQUIBB COMPANY
  Company Number: None

PATIENT
  Age: 77 Year
  Sex: Male
  Weight: 68 kg

DRUGS (15)
  1. YERVOY [Suspect]
     Active Substance: IPILIMUMAB
     Indication: Lung adenocarcinoma stage III
     Dosage: (1 MG/KG)
     Route: 040
     Dates: start: 20241219, end: 20241219
  2. OPDIVO [Suspect]
     Active Substance: NIVOLUMAB
     Indication: Lung adenocarcinoma stage III
     Dosage: 360 MG EVERY 3 WEEKS WITH 1 DOSE ON 19-DEC-2024 AND 1 DOSE ON 08-JAN-2025
     Route: 040
     Dates: start: 20241219
  3. OPDIVO [Suspect]
     Active Substance: NIVOLUMAB
     Dosage: 360 MG EVERY 3 WEEKS WITH 1 DOSE ON 19-DEC-2024 AND 1 DOSE ON 08-JAN-2025
     Route: 040
     Dates: start: 20250108
  4. PEMBROLIZUMAB [Suspect]
     Active Substance: PEMBROLIZUMAB
     Indication: Lung adenocarcinoma stage III
     Route: 040
     Dates: start: 20240819, end: 20241111
  5. CARBOPLATIN [Concomitant]
     Active Substance: CARBOPLATIN
     Indication: Lung adenocarcinoma stage III
     Route: 040
     Dates: start: 20240422, end: 20240624
  6. CARBOPLATIN [Concomitant]
     Active Substance: CARBOPLATIN
     Route: 040
     Dates: start: 20241219, end: 20250108
  7. PEMETREXED [Concomitant]
     Active Substance: PEMETREXED
     Indication: Lung adenocarcinoma stage III
     Route: 040
     Dates: start: 20240422, end: 20240624
  8. PACLITAXEL [Concomitant]
     Active Substance: PACLITAXEL
     Indication: Lung adenocarcinoma stage III
     Route: 040
     Dates: start: 20240422, end: 20250108
  9. XARELTO [Concomitant]
     Active Substance: RIVAROXABAN
     Indication: Peripheral arterial occlusive disease
     Dosage: LONG TERM TREATMENT
     Route: 048
  10. ASPIRIN [Concomitant]
     Active Substance: ASPIRIN
     Indication: Peripheral arterial occlusive disease
     Dosage: LONG TERM TREATMENT
     Route: 048
  11. INDAPAMIDE [Concomitant]
     Active Substance: INDAPAMIDE
     Indication: Hypertension
     Dosage: LONG TERM TREATMENT
     Route: 048
  12. DILTIAZEM [Concomitant]
     Active Substance: DILTIAZEM
     Indication: Hypertension
     Dosage: LONG TERM TREATMENT
     Route: 048
  13. ATORVASTATIN [Concomitant]
     Active Substance: ATORVASTATIN
     Indication: Dyslipidaemia
     Dosage: LONG TERM TREATMENT
     Route: 048
  14. EZETIMIBE [Concomitant]
     Active Substance: EZETIMIBE
     Indication: Dyslipidaemia
     Dosage: LONG TERM TREATMENT
     Route: 048
  15. METFORMIN\SITAGLIPTIN [Concomitant]
     Active Substance: METFORMIN\SITAGLIPTIN
     Indication: Type 2 diabetes mellitus
     Dosage: SITAGLIPTIN 50 MG + METFORMIN 850MG. LONG TERM TREATMENT
     Route: 048

REACTIONS (4)
  - Myocarditis [Recovering/Resolving]
  - Cardiac failure [Recovering/Resolving]
  - Arteriosclerosis coronary artery [Recovering/Resolving]
  - Off label use [Unknown]

NARRATIVE: CASE EVENT DATE: 20250101
